FAERS Safety Report 20018109 (Version 1)
Quarter: 2021Q4

REPORT INFORMATION
  Report Type: Spontaneous
  Country: US (occurrence: US)
  Receive Date: 20211101
  Receipt Date: 20211101
  Transmission Date: 20220303
  Serious: No
  Sender: FDA-Public Use
  Company Number: US-SA-SAC20211026001385

PATIENT
  Age: 80 Year
  Sex: Female

DRUGS (1)
  1. DUPIXENT [Suspect]
     Active Substance: DUPILUMAB
     Indication: Dermatitis atopic
     Dosage: 300 MG, ONCE EVERY MONTH
     Route: 058
     Dates: start: 20210112

REACTIONS (2)
  - Illness [Unknown]
  - Product use issue [Unknown]

NARRATIVE: CASE EVENT DATE: 20210112
